FAERS Safety Report 9287026 (Version 1)
Quarter: 2013Q2

REPORT INFORMATION
  Report Type: Spontaneous
  Country: CA (occurrence: CA)
  Receive Date: 20130513
  Receipt Date: 20130513
  Transmission Date: 20140414
  Serious: Yes (Death, Hospitalization)
  Sender: FDA-Public Use
  Company Number: CA-ELI_LILLY_AND_COMPANY-CA201305002329

PATIENT
  Age: 83 Year
  Sex: Female

DRUGS (9)
  1. FORTEO [Suspect]
     Indication: OSTEOPOROSIS
     Dosage: 20 UG, QD
     Route: 058
     Dates: start: 20111012, end: 20130430
  2. PANTOPRAZOLE [Concomitant]
  3. ASA [Concomitant]
     Dosage: 81 MG, UNKNOWN
  4. ATENOLOL [Concomitant]
  5. DILTIAZEM [Concomitant]
  6. TYLENOL                                 /SCH/ [Concomitant]
  7. PRO-AMOX [Concomitant]
  8. OXYCODONE [Concomitant]
  9. DOCUSATE SODIUM [Concomitant]

REACTIONS (1)
  - Death [Fatal]
